FAERS Safety Report 6152955-5 (Version None)
Quarter: 2009Q2

REPORT INFORMATION
  Report Type: 
  Country: None (occurrence: None)
  Receive Date: 20090413
  Receipt Date: 20090109
  Transmission Date: 20091009
  Serious: Yes (Hospitalization)
  Sender: FDA-Public Use
  Company Number: PHHO2007FR20789

PATIENT
  Sex: Female
  Weight: 59 kg

DRUGS (4)
  1. ERL 080A ERL+TAB [Suspect]
     Indication: RENAL TRANSPLANT
     Dosage: 1440 MG /DAILY
     Route: 048
     Dates: start: 20071101, end: 20080221
  2. NEORAL [Suspect]
     Indication: RENAL TRANSPLANT
     Dosage: 300MG/DAILY
     Dates: start: 20071101
  3. NEORAL [Suspect]
     Dosage: 200MG/DAILY
  4. IMUREL [Concomitant]

REACTIONS (3)
  - APHTHOUS STOMATITIS [None]
  - MUSCULOSKELETAL PAIN [None]
  - PYREXIA [None]
